FAERS Safety Report 21399638 (Version 1)
Quarter: 2022Q4

REPORT INFORMATION
  Report Type: Spontaneous
  Country: CA (occurrence: CA)
  Receive Date: 20221001
  Receipt Date: 20221001
  Transmission Date: 20230113
  Serious: Yes (Hospitalization)
  Sender: FDA-Public Use
  Company Number: CA-BAXTER-2022BAX020867

PATIENT
  Age: 8 Year
  Sex: Male

DRUGS (17)
  1. SODIUM CHLORIDE [Suspect]
     Active Substance: SODIUM CHLORIDE
     Indication: Product used for unknown indication
     Route: 065
  2. MANNITOL [Suspect]
     Active Substance: MANNITOL
     Indication: Product used for unknown indication
     Dosage: DOSAGE FORM: NOT SPECIFIED
     Route: 065
  3. CERITINIB [Suspect]
     Active Substance: CERITINIB
     Indication: Metastatic lymphoma
     Dosage: 20.0 MG/KG, QD
     Route: 065
  4. CERITINIB [Suspect]
     Active Substance: CERITINIB
     Indication: Anaplastic lymphoma kinase gene mutation
  5. CERITINIB [Suspect]
     Active Substance: CERITINIB
     Indication: Anaplastic large-cell lymphoma
  6. CYTARABINE [Suspect]
     Active Substance: CYTARABINE
     Indication: Metastatic lymphoma
     Dosage: 30 MILLIGRAM, DOSAGE FORM: POWDER FOR SOLUTION INTRATHECAL
     Route: 037
  7. CYTARABINE [Suspect]
     Active Substance: CYTARABINE
     Indication: Anaplastic lymphoma kinase gene mutation
  8. CYTARABINE [Suspect]
     Active Substance: CYTARABINE
     Indication: Anaplastic large-cell lymphoma
  9. DEXAMETHASONE [Suspect]
     Active Substance: DEXAMETHASONE
     Indication: Metastatic lymphoma
     Dosage: 10 MG/M2, QD, DOSAGE FORM: NOT SPECIFIED
     Route: 037
  10. DEXAMETHASONE [Suspect]
     Active Substance: DEXAMETHASONE
     Indication: Anaplastic lymphoma kinase gene mutation
  11. DEXAMETHASONE [Suspect]
     Active Substance: DEXAMETHASONE
     Indication: Anaplastic large-cell lymphoma
  12. HYDROCORTISONE [Suspect]
     Active Substance: HYDROCORTISONE
     Indication: Metastatic lymphoma
     Dosage: DOSAGE FORM: NOT SPECIFIED
     Route: 037
  13. HYDROCORTISONE [Suspect]
     Active Substance: HYDROCORTISONE
     Indication: Anaplastic lymphoma kinase gene mutation
  14. HYDROCORTISONE [Suspect]
     Active Substance: HYDROCORTISONE
     Indication: Anaplastic large-cell lymphoma
  15. METHOTREXATE [Suspect]
     Active Substance: METHOTREXATE
     Indication: Metastatic lymphoma
     Dosage: 15.0 MILLIGRAM, DOSAGE FORM: NOT SPECIFIED
     Route: 037
  16. METHOTREXATE [Suspect]
     Active Substance: METHOTREXATE
     Indication: Anaplastic lymphoma kinase gene mutation
  17. METHOTREXATE [Suspect]
     Active Substance: METHOTREXATE
     Indication: Anaplastic large-cell lymphoma

REACTIONS (1)
  - Drug ineffective [Unknown]
